FAERS Safety Report 13863540 (Version 3)
Quarter: 2018Q1

REPORT INFORMATION
  Report Type: Spontaneous
  Country: US (occurrence: US)
  Receive Date: 20170814
  Receipt Date: 20180226
  Transmission Date: 20180508
  Serious: No
  Sender: FDA-Public Use
  Company Number: US-PFIZER INC-2017347285

PATIENT
  Age: 83 Year
  Sex: Male
  Weight: 60.78 kg

DRUGS (3)
  1. LYRICA [Suspect]
     Active Substance: PREGABALIN
     Indication: PROCEDURAL PAIN
     Dosage: UNK
  2. LYRICA [Suspect]
     Active Substance: PREGABALIN
     Indication: NEURALGIA
  3. LYRICA [Suspect]
     Active Substance: PREGABALIN
     Indication: SPINAL CORD INJURY

REACTIONS (6)
  - Drug ineffective [Unknown]
  - Insomnia [Unknown]
  - Vision blurred [Unknown]
  - Gait disturbance [Unknown]
  - Dry mouth [Unknown]
  - Poor quality sleep [Unknown]
